FAERS Safety Report 8508820-9 (Version None)
Quarter: 2012Q3

REPORT INFORMATION
  Report Type: 
  Country: None (occurrence: None)
  Receive Date: 20120713
  Receipt Date: 20120702
  Transmission Date: 20120928
  Serious: Yes (Other)
  Sender: FDA-Public Use
  Company Number: JP-AMGEN-JPNCT2012043051

PATIENT
  Age: 79 Year
  Sex: Male
  Weight: 47 kg

DRUGS (12)
  1. OMEPRAZOLE [Concomitant]
     Dosage: UNCERTAINTY
     Route: 048
  2. LIPOVATOL [Concomitant]
     Dosage: UNCERTAINTY
     Route: 048
  3. DARBEPOETIN ALFA - KHK [Suspect]
     Indication: NEPHROGENIC ANAEMIA
     Dosage: 60 MUG, Q4WK
     Route: 042
     Dates: start: 20110119
  4. ARGAMATE [Concomitant]
     Dosage: UNCERTAINTY
     Route: 048
  5. FERROUS SULFATE TAB [Concomitant]
     Dosage: UNCERTAINTY
     Route: 048
  6. ASPIRIN [Concomitant]
     Dosage: UNCERTAINTY
     Route: 048
  7. DIOVAN [Concomitant]
     Dosage: UNCERTAINTY
     Route: 048
  8. CALBLOCK [Concomitant]
     Dosage: UNCERTAINTY
     Route: 048
  9. KAYEXALATE [Concomitant]
     Dosage: UNCERTAINTY
     Route: 048
  10. SENNAL [Concomitant]
     Dosage: UNCERTAINTY
     Route: 048
  11. IRBESARTAN [Concomitant]
     Dosage: UNCERTAINTY
     Route: 048
  12. LEVOTHYROXINE SODIUM [Concomitant]
     Dosage: UNCERTAINTY
     Route: 048

REACTIONS (1)
  - HYPOTHYROIDISM [None]
